FAERS Safety Report 19444062 (Version 3)
Quarter: 2021Q3

REPORT INFORMATION
  Report Type: Spontaneous
  Country: US (occurrence: US)
  Receive Date: 20210621
  Receipt Date: 20210908
  Transmission Date: 20211014
  Serious: No
  Sender: FDA-Public Use
  Company Number: US-PFIZER INC-2021599376

PATIENT
  Age: 4 Year
  Sex: Female

DRUGS (1)
  1. XELJANZ [Suspect]
     Active Substance: TOFACITINIB CITRATE
     Dosage: UNK (1 MG/ML)
     Route: 048
     Dates: start: 20210416, end: 20210705

REACTIONS (3)
  - Drug ineffective [Unknown]
  - Nausea [Unknown]
  - Condition aggravated [Unknown]
